FAERS Safety Report 12967995 (Version 1)
Quarter: 2016Q4

REPORT INFORMATION
  Report Type: Spontaneous
  Country: US (occurrence: US)
  Receive Date: 20161122
  Receipt Date: 20161122
  Transmission Date: 20170207
  Serious: No
  Sender: FDA-Public Use
  Company Number: None

PATIENT
  Age: 91 Year
  Sex: Female

DRUGS (14)
  1. LEVOTHYROXINE. [Concomitant]
     Active Substance: LEVOTHYROXINE
  2. LORAZEPAM. [Concomitant]
     Active Substance: LORAZEPAM
  3. DOCUSATE [Concomitant]
     Active Substance: DOCUSATE
  4. ROPINIROLE. [Concomitant]
     Active Substance: ROPINIROLE
  5. ACYCLOVIR. [Concomitant]
     Active Substance: ACYCLOVIR
  6. CALCIUM [Concomitant]
     Active Substance: CALCIUM
  7. ONDANSETRON [Concomitant]
     Active Substance: ONDANSETRON
  8. FUROSEMIDE. [Concomitant]
     Active Substance: FUROSEMIDE
  9. FERROUS SULFATE. [Concomitant]
     Active Substance: FERROUS SULFATE
  10. VITAMIN D3 [Concomitant]
     Active Substance: CHOLECALCIFEROL
  11. ELIQUIS [Concomitant]
     Active Substance: APIXABAN
  12. MULTAQ [Concomitant]
     Active Substance: DRONEDARONE
  13. FENTANYL TRANSDERMAL SYSTEM [Suspect]
     Active Substance: FENTANYL
     Indication: PAIN
  14. POTASSIUM CHLORIDE. [Concomitant]
     Active Substance: POTASSIUM CHLORIDE

REACTIONS (5)
  - Product colour issue [None]
  - Wrong technique in product usage process [None]
  - Drug effect decreased [None]
  - Withdrawal syndrome [None]
  - Product label confusion [None]

NARRATIVE: CASE EVENT DATE: 20160101
